FAERS Safety Report 4463125-0 (Version None)
Quarter: 2004Q3

REPORT INFORMATION
  Report Type: 
  Country: None (occurrence: None)
  Receive Date: 20040928
  Receipt Date: 20040913
  Transmission Date: 20050211
  Serious: Yes (Hospitalization)
  Sender: FDA-Public Use
  Company Number: 2004-04097

PATIENT
  Age: 77 Year
  Sex: Female

DRUGS (3)
  1. CLINDAMYCIN HYDROCHLORIDE [Suspect]
     Indication: ANIMAL BITE
     Dosage: ORAL
     Route: 048
     Dates: start: 20040720
  2. HYZAAR [Suspect]
     Indication: HYPERTENSION
  3. SYNTHROID [Concomitant]

REACTIONS (6)
  - DERMATITIS BULLOUS [None]
  - MOUTH HAEMORRHAGE [None]
  - PETECHIAE [None]
  - RASH ERYTHEMATOUS [None]
  - RASH GENERALISED [None]
  - THROMBOCYTOPENIA [None]
